FAERS Safety Report 21166938 (Version 1)
Quarter: 2022Q3

REPORT INFORMATION
  Report Type: Report from Study
  Country: US (occurrence: US)
  Receive Date: 20220803
  Receipt Date: 20220803
  Transmission Date: 20221027
  Serious: Yes (Other)
  Sender: FDA-Public Use
  Company Number: US-BRISTOL-MYERS SQUIBB COMPANY-2022-017465

PATIENT
  Age: 62 Year
  Sex: Male
  Weight: 68.6 kg

DRUGS (5)
  1. CARBOPLATIN [Suspect]
     Active Substance: CARBOPLATIN
     Indication: Oesophageal adenocarcinoma
     Route: 065
     Dates: start: 20211229, end: 20220201
  2. CARBOPLATIN [Suspect]
     Active Substance: CARBOPLATIN
     Dosage: LAST ADMINISTERED DATE
     Route: 065
     Dates: start: 20220119
  3. NIVOLUMAB [Suspect]
     Active Substance: NIVOLUMAB
     Indication: Oesophageal adenocarcinoma
     Route: 065
     Dates: start: 20211229, end: 20220112
  4. PACLITAXEL [Suspect]
     Active Substance: PACLITAXEL
     Indication: Oesophageal adenocarcinoma
     Route: 065
     Dates: start: 20211229, end: 20220201
  5. PACLITAXEL [Suspect]
     Active Substance: PACLITAXEL
     Dosage: LAST ADMINISTERED DATE
     Route: 065
     Dates: start: 20220119

REACTIONS (8)
  - Decreased appetite [Recovered/Resolved]
  - Dysphagia [Recovered/Resolved]
  - Nausea [Recovered/Resolved]
  - Vomiting [Recovered/Resolved]
  - Weight decreased [Recovered/Resolved]
  - Lymphocyte count decreased [Recovered/Resolved]
  - Neutrophil count decreased [Recovered/Resolved]
  - Syncope [Recovered/Resolved]

NARRATIVE: CASE EVENT DATE: 20220117
